FAERS Safety Report 9837270 (Version 1)
Quarter: 2013Q4

REPORT INFORMATION
  Report Type: Spontaneous
  Country: US (occurrence: None)
  Receive Date: 20131127
  Receipt Date: 20131127
  Transmission Date: 20140711
  Serious: No
  Sender: FDA-Public Use
  Company Number: 224323

PATIENT
  Age: 64 Year
  Sex: Female

DRUGS (1)
  1. PICATO [Suspect]
     Indication: ACTINIC KERATOSIS
     Dosage: 1 IN 1 D STARTED 2 WEEKS PRIOR
     Route: 061

REACTIONS (4)
  - Application site exfoliation [None]
  - Application site erythema [None]
  - Drug administered at inappropriate site [None]
  - Incorrect dose administered [None]
